FAERS Safety Report 9608274 (Version 1)
Quarter: 2013Q4

REPORT INFORMATION
  Report Type: Spontaneous
  Country: US (occurrence: US)
  Receive Date: 20131009
  Receipt Date: 20131009
  Transmission Date: 20140711
  Serious: No
  Sender: FDA-Public Use
  Company Number: US-PFIZER INC-2013289230

PATIENT
  Age: 52 Year
  Sex: Female
  Weight: 52.15 kg

DRUGS (5)
  1. LYRICA [Suspect]
     Indication: FIBROMYALGIA
     Dosage: 75 MG, 3X/DAY
     Dates: end: 201309
  2. SYNTHROID [Concomitant]
     Indication: THYROID DISORDER
     Dosage: UNK
  3. XANAX [Concomitant]
     Indication: DEPRESSION
     Dosage: 5 MG, AS NEEDED
  4. XANAX [Concomitant]
     Indication: ANXIETY
  5. NORCO [Concomitant]
     Dosage: UNK, AS NEEDED

REACTIONS (1)
  - Drug ineffective [Not Recovered/Not Resolved]
